FAERS Safety Report 7749433-6 (Version None)
Quarter: 2011Q3

REPORT INFORMATION
  Report Type: 
  Country: None (occurrence: None)
  Receive Date: 20110907
  Receipt Date: 20110902
  Transmission Date: 20111222
  Serious: Yes (Death)
  Sender: FDA-Public Use
  Company Number: 2011SP041492

PATIENT
  Sex: Female

DRUGS (1)
  1. ETONOGESTREL (IMPLANT TYPE UNKNOWN) (ETONOGESTREL) [Suspect]
     Indication: PRODUCT USED FOR UNKNOWN INDICATION
     Dosage: 1 DF

REACTIONS (1)
  - DEATH [None]
